FAERS Safety Report 12850342 (Version 1)
Quarter: 2016Q4

REPORT INFORMATION
  Report Type: Spontaneous
  Country: RO (occurrence: RO)
  Receive Date: 20161014
  Receipt Date: 20161014
  Transmission Date: 20170207
  Serious: Yes (Other)
  Sender: FDA-Public Use
  Company Number: RO-JNJFOC-20161009942

PATIENT

DRUGS (3)
  1. DEXAMETHASONE. [Suspect]
     Active Substance: DEXAMETHASONE
     Indication: PLASMA CELL MYELOMA
     Dosage: 4 CYCLES, (DAYS 1-4, 8-11)
     Route: 048
  2. DOXORUBICIN HYDROCHLORIDE. [Suspect]
     Active Substance: DOXORUBICIN HYDROCHLORIDE
     Indication: PLASMA CELL MYELOMA
     Dosage: 4 CYCLES, (DAYS 1-4)
     Route: 065
  3. BORTEZOMIB [Suspect]
     Active Substance: BORTEZOMIB
     Indication: PLASMA CELL MYELOMA
     Dosage: 4 CYCLES, (DAYS 1, 4, 8,11)
     Route: 065

REACTIONS (7)
  - Neutropenia [Unknown]
  - Gastrointestinal disorder [Unknown]
  - Infection [Unknown]
  - Thrombocytopenia [Unknown]
  - Anaemia [Unknown]
  - Blood albumin abnormal [Unknown]
  - Neuropathy peripheral [Unknown]
